FAERS Safety Report 22682958 (Version 5)
Quarter: 2024Q1

REPORT INFORMATION
  Report Type: Spontaneous
  Country: ES (occurrence: ES)
  Receive Date: 20230707
  Receipt Date: 20240108
  Transmission Date: 20240409
  Serious: Yes (Hospitalization, Other)
  Sender: FDA-Public Use
  Company Number: ES-TAKEDA-2023TUS066250

PATIENT
  Age: 40 Year
  Sex: Male

DRUGS (31)
  1. CARBAMAZEPINE [Suspect]
     Active Substance: CARBAMAZEPINE
     Indication: New onset refractory status epilepticus
     Dosage: UNK
     Route: 042
  2. CARBAMAZEPINE [Suspect]
     Active Substance: CARBAMAZEPINE
     Indication: Anaesthesia
  3. CARBAMAZEPINE [Suspect]
     Active Substance: CARBAMAZEPINE
     Indication: Status epilepticus
  4. FENTANYL [Suspect]
     Active Substance: FENTANYL\FENTANYL CITRATE
     Indication: New onset refractory status epilepticus
     Dosage: UNK
     Route: 065
  5. LEVETIRACETAM [Suspect]
     Active Substance: LEVETIRACETAM
     Indication: New onset refractory status epilepticus
     Dosage: UNK
     Route: 065
  6. LEVETIRACETAM [Suspect]
     Active Substance: LEVETIRACETAM
     Indication: Status epilepticus
  7. TOPIRAMATE [Suspect]
     Active Substance: TOPIRAMATE
     Indication: New onset refractory status epilepticus
     Dosage: UNK
     Route: 065
  8. TOPIRAMATE [Suspect]
     Active Substance: TOPIRAMATE
     Indication: Status epilepticus
  9. LACOSAMIDE [Suspect]
     Active Substance: LACOSAMIDE
     Indication: New onset refractory status epilepticus
     Dosage: UNK
     Route: 065
  10. LACOSAMIDE [Suspect]
     Active Substance: LACOSAMIDE
     Indication: Status epilepticus
  11. VALPROIC ACID [Suspect]
     Active Substance: VALPROIC ACID
     Indication: New onset refractory status epilepticus
     Dosage: UNK
     Route: 065
  12. PERAMPANEL [Suspect]
     Active Substance: PERAMPANEL
     Indication: New onset refractory status epilepticus
     Dosage: UNK
     Route: 065
  13. KETAMINE [Suspect]
     Active Substance: KETAMINE
     Indication: New onset refractory status epilepticus
     Dosage: UNK
     Route: 042
  14. KETAMINE [Suspect]
     Active Substance: KETAMINE
     Indication: Anaesthesia
  15. PROPOFOL [Suspect]
     Active Substance: PROPOFOL
     Indication: New onset refractory status epilepticus
     Dosage: UNK
     Route: 042
  16. PROPOFOL [Suspect]
     Active Substance: PROPOFOL
     Indication: Anaesthesia
  17. PENTOTHAL [Suspect]
     Active Substance: THIOPENTAL SODIUM
     Indication: New onset refractory status epilepticus
     Dosage: UNK
     Route: 042
  18. PENTOTHAL [Suspect]
     Active Substance: THIOPENTAL SODIUM
     Indication: Anaesthesia
  19. PHENYTOIN [Suspect]
     Active Substance: PHENYTOIN
     Indication: New onset refractory status epilepticus
     Dosage: UNK
     Route: 065
  20. PHENYTOIN [Suspect]
     Active Substance: PHENYTOIN
     Indication: Status epilepticus
  21. PHENOBARBITAL [Suspect]
     Active Substance: PHENOBARBITAL
     Indication: New onset refractory status epilepticus
     Dosage: UNK
     Route: 065
  22. PHENOBARBITAL [Suspect]
     Active Substance: PHENOBARBITAL
     Indication: Status epilepticus
  23. AMPICILLIN [Concomitant]
     Active Substance: AMPICILLIN
     Indication: Infection prophylaxis
     Dosage: UNK
     Route: 065
  24. AZD-1222 [Concomitant]
     Active Substance: AZD-1222
     Indication: COVID-19 prophylaxis
     Dosage: UNK
     Route: 065
  25. AZD-1222 [Concomitant]
     Active Substance: AZD-1222
     Indication: COVID-19 immunisation
  26. ACYCLOVIR [Concomitant]
     Active Substance: ACYCLOVIR
     Indication: Infection prophylaxis
     Dosage: UNK
     Route: 065
  27. RITUXIMAB [Concomitant]
     Active Substance: RITUXIMAB
     Indication: Immunosuppression
     Dosage: UNK
     Route: 065
  28. RITUXIMAB [Concomitant]
     Active Substance: RITUXIMAB
     Indication: Radioimmunotherapy
  29. CEFUROXIME [Concomitant]
     Active Substance: CEFUROXIME
     Indication: Urinary tract infection
     Dosage: UNK
     Route: 065
  30. CEFTRIAXONE [Concomitant]
     Active Substance: CEFTRIAXONE\CEFTRIAXONE SODIUM
     Indication: Infection prophylaxis
     Dosage: UNK
     Route: 065
  31. CLOBAZAM [Concomitant]
     Active Substance: CLOBAZAM
     Indication: New onset refractory status epilepticus
     Dosage: UNK
     Route: 065

REACTIONS (6)
  - Generalised tonic-clonic seizure [Recovering/Resolving]
  - Quadriparesis [Unknown]
  - Polyneuropathy [Unknown]
  - Nervous system disorder [Unknown]
  - Drug ineffective [Unknown]
  - Off label use [Unknown]
